FAERS Safety Report 22171822 (Version 1)
Quarter: 2023Q2

REPORT INFORMATION
  Report Type: Spontaneous
  Country: US (occurrence: US)
  Receive Date: 20230404
  Receipt Date: 20230404
  Transmission Date: 20230721
  Serious: No
  Sender: FDA-Public Use
  Company Number: US-GALDERMA-US2023004006

PATIENT

DRUGS (6)
  1. PROACTIV MD ADAPALENE ACNE TREATMENT [Suspect]
     Active Substance: ADAPALENE
     Indication: Acne
     Dosage: 1 DOSAGE FORM, QD, APPLIED NICKEL SIZE ON FACE AND BACK
     Route: 061
     Dates: start: 202212, end: 2023
  2. PROACTIV CLEAR SKIN SPF 30 [Concomitant]
     Active Substance: AVOBENZONE\OCTISALATE\OCTOCRYLENE
     Indication: Acne
     Dosage: 1 DOSAGE FORM, QD, APPLIED ON FACE AND BACK
     Route: 061
     Dates: start: 202212, end: 2023
  3. Proactiv MD Ultra Gentle Cleanser [Concomitant]
     Indication: Acne
     Dosage: 1 DOSAGE FORM, QD, APPLIED ON FACE AND BACK
     Route: 061
     Dates: start: 202212, end: 2023
  4. Proactiv MD Ultra Hydrating Moisturizer [Concomitant]
     Indication: Acne
     Dosage: 1 DOSAGE FORM, QD, APPLIED ON FACE AND BACK
     Route: 061
     Dates: start: 202212, end: 2023
  5. PROACTIV ACNE BODY WASH [Concomitant]
     Active Substance: SALICYLIC ACID
     Indication: Acne
     Dosage: 1 DOSAGE FORM, QD, APPLIED ON FACE AND BACK
     Route: 061
     Dates: start: 202212, end: 2023
  6. PROACTIV BLACKHEAD DISSOLVING [Concomitant]
     Active Substance: SALICYLIC ACID
     Indication: Acne
     Dosage: 1 DOSAGE FORM, QD, APPLIED ON FACE AND BACK
     Route: 061
     Dates: start: 202212, end: 2023

REACTIONS (1)
  - Drug ineffective [Unknown]
